FAERS Safety Report 20973202 (Version 1)
Quarter: 2022Q2

REPORT INFORMATION
  Report Type: Spontaneous
  Country: US (occurrence: US)
  Receive Date: 20220617
  Receipt Date: 20220617
  Transmission Date: 20220721
  Serious: No
  Sender: FDA-Public Use
  Company Number: US-ENDO PHARMACEUTICALS INC-2021-010858

PATIENT
  Sex: Male

DRUGS (2)
  1. SUPPRELIN LA [Suspect]
     Active Substance: HISTRELIN ACETATE
     Indication: Precocious puberty
     Dosage: 50 MG, ONCE A YEAR
     Route: 058
  2. SUPPRELIN LA [Suspect]
     Active Substance: HISTRELIN ACETATE
     Indication: Precocious puberty
     Dosage: 50 MG, ONCE A YEAR
     Route: 058

REACTIONS (4)
  - Unevaluable event [Unknown]
  - Product dose omission issue [Unknown]
  - Product distribution issue [Unknown]
  - Therapeutic product effect decreased [Unknown]
